FAERS Safety Report 25023472 (Version 1)
Quarter: 2025Q1

REPORT INFORMATION
  Report Type: Spontaneous
  Country: US (occurrence: US)
  Receive Date: 20250228
  Receipt Date: 20250228
  Transmission Date: 20250409
  Serious: No
  Sender: BAYER HEALTHCARE LLC
  Company Number: US-BAYER-2025A028565

PATIENT
  Age: 54 Year
  Sex: Female

DRUGS (2)
  1. ASPIRIN [Suspect]
     Active Substance: ASPIRIN
     Indication: Premedication
  2. LORATADINE [Suspect]
     Active Substance: LORATADINE
     Indication: Premedication

REACTIONS (2)
  - Drug ineffective [None]
  - Product use in unapproved indication [None]
